FAERS Safety Report 4449173-5 (Version None)
Quarter: 2004Q3

REPORT INFORMATION
  Report Type: 
  Country: None (occurrence: None)
  Receive Date: 20040910
  Receipt Date: 20040831
  Transmission Date: 20050211
  Serious: Yes (Life-Threatening, Hospitalization, Disabling)
  Sender: FDA-Public Use
  Company Number: 2004AP04573

PATIENT
  Age: 70 Year
  Sex: Male
  Weight: 100 kg

DRUGS (2)
  1. IRESSA [Suspect]
     Indication: PROSTATE CANCER
     Dosage: 250 MG DAILY PO
     Route: 048
     Dates: start: 20040217, end: 20040413
  2. RADIOTHERAPY [Suspect]
     Indication: PROSTATE CANCER
     Dosage: 2 GY
     Dates: start: 20040224, end: 20040420

REACTIONS (4)
  - APHASIA [None]
  - FALL [None]
  - HAEMATOMA [None]
  - LOSS OF CONSCIOUSNESS [None]
